FAERS Safety Report 10461465 (Version 1)
Quarter: 2014Q3

REPORT INFORMATION
  Report Type: Spontaneous
  Country: US (occurrence: None)
  Receive Date: 20140917
  Receipt Date: 20140917
  Transmission Date: 20150326
  Serious: No
  Sender: FDA-Public Use
  Company Number: None

PATIENT
  Age: 75 Year
  Sex: Female

DRUGS (1)
  1. STIVARGA [Suspect]
     Active Substance: REGORAFENIB
     Indication: RECTOSIGMOID CANCER
     Dosage: STIVARGA 40MG, 3TABS QD, PO
     Route: 048
     Dates: start: 20140801

REACTIONS (3)
  - Hypertension [None]
  - Intentional product misuse [None]
  - Pyrexia [None]

NARRATIVE: CASE EVENT DATE: 20140901
